FAERS Safety Report 20136586 (Version 25)
Quarter: 2023Q4

REPORT INFORMATION
  Report Type: Report from Study
  Country: CA (occurrence: CA)
  Receive Date: 20211201
  Receipt Date: 20231120
  Transmission Date: 20240110
  Serious: Yes (Hospitalization, Other)
  Sender: FDA-Public Use
  Company Number: CA-KOREA IPSEN Pharma-2021-26875

PATIENT
  Age: 78 Year
  Sex: Male

DRUGS (11)
  1. LANREOTIDE ACETATE [Suspect]
     Active Substance: LANREOTIDE ACETATE
     Indication: Carcinoid syndrome
     Dosage: 120 MG EVERY 4 WEEKS
     Route: 058
     Dates: start: 20211027
  2. LANREOTIDE ACETATE [Suspect]
     Active Substance: LANREOTIDE ACETATE
     Dosage: 120 MG EVERY 4 WEEKS
     Route: 058
  3. METOPROLOL [Concomitant]
     Active Substance: METOPROLOL
     Indication: Hypertension
     Dosage: 37.5 MG BID
  4. METOPROLOL [Concomitant]
     Active Substance: METOPROLOL
     Dosage: 37.5 MG BID
  5. ROSUVASTATIN [Concomitant]
     Active Substance: ROSUVASTATIN
     Dosage: 5 MG DIE
  6. TELMISARTAN [Concomitant]
     Active Substance: TELMISARTAN
     Dosage: 40 MG DIE
     Dates: end: 202201
  7. WARFARIN [Concomitant]
     Active Substance: WARFARIN
     Dosage: 10 MG, 4 TIMES A WEEK
  8. WARFARIN [Concomitant]
     Active Substance: WARFARIN
     Dosage: 4 TIMES A WEEK
  9. HYDROCHLOROTHIAZIDE [Concomitant]
     Active Substance: HYDROCHLOROTHIAZIDE
     Dosage: 25MG, OD
  10. ASPIRIN [Concomitant]
     Active Substance: ASPIRIN
     Dosage: 81MG, DIE
  11. TINZAPARIN [Concomitant]
     Active Substance: TINZAPARIN
     Dosage: 1XMOS
     Dates: start: 202203

REACTIONS (47)
  - Pneumonia [Unknown]
  - Dyspnoea at rest [Recovered/Resolved]
  - Hypoaesthesia [Unknown]
  - Bradycardia [Unknown]
  - Nephrolithiasis [Unknown]
  - Conjunctival haemorrhage [Not Recovered/Not Resolved]
  - Hospitalisation [Unknown]
  - Blood pressure increased [Recovered/Resolved]
  - International normalised ratio increased [Recovered/Resolved]
  - Faeces pale [Not Recovered/Not Resolved]
  - Pain in extremity [Not Recovered/Not Resolved]
  - Respiratory rate increased [Not Recovered/Not Resolved]
  - Injection site haemorrhage [Unknown]
  - Injection site pain [Recovered/Resolved]
  - Arthralgia [Not Recovered/Not Resolved]
  - Injection site pain [Not Recovered/Not Resolved]
  - Injection site pain [Recovered/Resolved]
  - Nausea [Recovering/Resolving]
  - Heart rate decreased [Recovered/Resolved]
  - Respiratory rate increased [Recovered/Resolved]
  - Blood pressure increased [Recovered/Resolved]
  - Muscular weakness [Recovered/Resolved]
  - Diarrhoea [Recovering/Resolving]
  - Diarrhoea [Recovering/Resolving]
  - Off label use [Unknown]
  - Hypertension [Recovering/Resolving]
  - Blood pressure abnormal [Unknown]
  - Heart rate abnormal [Unknown]
  - Prothrombin level abnormal [Recovering/Resolving]
  - Ocular hyperaemia [Not Recovered/Not Resolved]
  - Eye discharge [Not Recovered/Not Resolved]
  - Rash [Not Recovered/Not Resolved]
  - Scratch [Not Recovered/Not Resolved]
  - Hypertension [Unknown]
  - Injection site mass [Not Recovered/Not Resolved]
  - Injection site discomfort [Unknown]
  - Rash [Unknown]
  - Dry skin [Unknown]
  - Pruritus [Unknown]
  - Scab [Not Recovered/Not Resolved]
  - Cough [Not Recovered/Not Resolved]
  - Hypertension [Not Recovered/Not Resolved]
  - Cough [Recovered/Resolved]
  - Fatigue [Recovered/Resolved]
  - Hypotension [Recovered/Resolved]
  - Cough [Recovered/Resolved]
  - Hypertension [Unknown]

NARRATIVE: CASE EVENT DATE: 20210101
